FAERS Safety Report 7752000-1 (Version None)
Quarter: 2011Q3

REPORT INFORMATION
  Report Type: 
  Country: None (occurrence: None)
  Receive Date: 20110913
  Receipt Date: 20110830
  Transmission Date: 20111222
  Serious: Yes (Other)
  Sender: FDA-Public Use
  Company Number: 2011-2302

PATIENT
  Age: 51 Year
  Sex: Female

DRUGS (1)
  1. SOMATULINE DEPOT [Suspect]
     Indication: ACROMEGALY
     Dosage: 120 MG (120 MG,1 IN 28 D),SUBCUTANEOUS
     Route: 058
     Dates: start: 20080718

REACTIONS (4)
  - INFLUENZA LIKE ILLNESS [None]
  - VOMITING [None]
  - PERICARDITIS [None]
  - CONDITION AGGRAVATED [None]
